FAERS Safety Report 13024046 (Version 2)
Quarter: 2017Q1

REPORT INFORMATION
  Report Type: Other
  Country: None (occurrence: TR)
  Receive Date: 20161213
  Receipt Date: 20170322
  Transmission Date: 20170428
  Serious: Yes (Other)
  Sender: FDA-Public Use
  Company Number: TR-MEDAC PHARMA, INC.-1060749

PATIENT
  Age: 50 Year
  Sex: Female

DRUGS (1)
  1. METHOTREXATE. [Suspect]
     Active Substance: METHOTREXATE
     Indication: PSORIASIS

REACTIONS (9)
  - Haematuria [Unknown]
  - Ulcer haemorrhage [Recovered/Resolved]
  - Drug interaction [Unknown]
  - Food interaction [Unknown]
  - Toxicity to various agents [Unknown]
  - Leukopenia [Recovered/Resolved]
  - Thrombocytopenia [Recovered/Resolved]
  - Folate deficiency [Unknown]
  - Ulcer [Recovered/Resolved]
